FAERS Safety Report 8659536 (Version 3)
Quarter: 2012Q4

REPORT INFORMATION
  Report Type: 
  Country: DK (occurrence: DK)
  Receive Date: 20120711
  Receipt Date: 20121225
  Transmission Date: 20130627
  Serious: Yes (Hospitalization, Disabling)
  Sender: FDA-Public Use
  Company Number: DK-AMGEN-DNKSP2012041547

PATIENT
  Sex: Female
  Weight: 55 kg

DRUGS (1)
  1. ENBREL [Suspect]
     Indication: PRODUCT USED FOR UNKNOWN INDICATION
     Dosage: 50 mg, weekly
     Dates: start: 20100825, end: 20120116

REACTIONS (1)
  - Breast cancer [Recovered/Resolved with Sequelae]
